FAERS Safety Report 8470956-9 (Version None)
Quarter: 2012Q2

REPORT INFORMATION
  Report Type: 
  Country: None (occurrence: None)
  Receive Date: 20120323
  Receipt Date: 20111209
  Transmission Date: 20120825
  Serious: Yes (Hospitalization, Other)
  Sender: FDA-Public Use
  Company Number: 163-21880-11082807

PATIENT
  Age: 81 Year
  Sex: Female

DRUGS (12)
  1. ROSUVASTATIN [Concomitant]
  2. TRAMADOL HCL [Concomitant]
  3. LOPERAMIDE [Concomitant]
  4. NITROGLYCERIN [Concomitant]
  5. LANTHANUM (LANTHANUM CARBONATE) [Concomitant]
  6. OXYGEN (OXYGEN) [Concomitant]
  7. B-COMPLEX-VITAMIN C-FOLIC ACID (VITAMIN B-COMPLEX WITH VITAMIN C) [Concomitant]
  8. ROPINIROLE [Concomitant]
  9. REVLIMID [Suspect]
     Indication: MULTIPLE MYELOMA
     Dosage: 15 MG, 1 IN 1 D, PO, 10 MG, 1 IN 1 D, PO, 5 MG, DAILY X 14 DAYS EVERY 28 DAYS, PO
     Route: 048
     Dates: start: 20090101
  10. REVLIMID [Suspect]
     Indication: MULTIPLE MYELOMA
     Dosage: 15 MG, 1 IN 1 D, PO, 10 MG, 1 IN 1 D, PO, 5 MG, DAILY X 14 DAYS EVERY 28 DAYS, PO
     Route: 048
     Dates: start: 20080124
  11. REVLIMID [Suspect]
     Indication: MULTIPLE MYELOMA
     Dosage: 15 MG, 1 IN 1 D, PO, 10 MG, 1 IN 1 D, PO, 5 MG, DAILY X 14 DAYS EVERY 28 DAYS, PO
     Route: 048
     Dates: start: 20101001, end: 20110711
  12. TEMAZEPAM [Concomitant]

REACTIONS (3)
  - INSOMNIA [None]
  - PATHOLOGICAL FRACTURE [None]
  - CONFUSIONAL STATE [None]
